FAERS Safety Report 25183797 (Version 1)
Quarter: 2025Q2

REPORT INFORMATION
  Report Type: Spontaneous
  Country: US (occurrence: US)
  Receive Date: 20250410
  Receipt Date: 20250410
  Transmission Date: 20250716
  Serious: No
  Sender: SANOFI AVENTIS
  Company Number: US-SA-2025SA102077

PATIENT
  Sex: Female
  Weight: 100.45 kg

DRUGS (7)
  1. DUPIXENT [Suspect]
     Active Substance: DUPILUMAB
     Indication: Dermatitis atopic
     Route: 058
  2. ESCITALOPRAM OXALATE [Concomitant]
     Active Substance: ESCITALOPRAM OXALATE
  3. DESONIDE [Concomitant]
     Active Substance: DESONIDE
  4. MELOXICAM [Concomitant]
     Active Substance: MELOXICAM
  5. KETOCONAZOLE [Concomitant]
     Active Substance: KETOCONAZOLE
  6. OFLOXACIN [Concomitant]
     Active Substance: OFLOXACIN
  7. BENZONATATE [Concomitant]
     Active Substance: BENZONATATE

REACTIONS (1)
  - Dermatitis atopic [Unknown]
